FAERS Safety Report 18085119 (Version 1)
Quarter: 2020Q3

REPORT INFORMATION
  Report Type: Spontaneous
  Country: DE (occurrence: DE)
  Receive Date: 20200728
  Receipt Date: 20200728
  Transmission Date: 20201103
  Serious: Yes (Other)
  Sender: FDA-Public Use
  Company Number: NVSC2020DE196609

PATIENT
  Age: 71 Year
  Sex: Male
  Weight: 73 kg

DRUGS (1)
  1. ERELZI [Suspect]
     Active Substance: ETANERCEPT-SZZS
     Indication: PSORIATIC ARTHROPATHY
     Dosage: 50 MG, QW
     Route: 058
     Dates: start: 20200308, end: 20200608

REACTIONS (7)
  - Hypersensitivity [Recovering/Resolving]
  - Pruritus [Recovered/Resolved]
  - Blood pressure systolic increased [Recovered/Resolved]
  - Acne [Recovered/Resolved]
  - Blood pressure diastolic increased [Recovered/Resolved]
  - Arrhythmia [Recovered/Resolved]
  - Rash [Recovered/Resolved]

NARRATIVE: CASE EVENT DATE: 20200515
